FAERS Safety Report 6838802-4 (Version None)
Quarter: 2010Q3

REPORT INFORMATION
  Report Type: 
  Country: None (occurrence: None)
  Receive Date: 20100713
  Receipt Date: 20070626
  Transmission Date: 20110219
  Serious: Yes (Other)
  Sender: FDA-Public Use
  Company Number: US-PFIZER INC-2007043444

PATIENT
  Sex: Female
  Weight: 105.9 kg

DRUGS (7)
  1. CHANTIX [Suspect]
     Indication: SMOKING CESSATION THERAPY
     Route: 048
     Dates: start: 20070507, end: 20070524
  2. MOBIC [Concomitant]
  3. VICODIN [Concomitant]
  4. ANTIACID [Concomitant]
  5. VITAMINS [Concomitant]
  6. TYLENOL PM [Suspect]
  7. ROBITUSSIN-DM [Concomitant]

REACTIONS (6)
  - CHEST PAIN [None]
  - DYSPNOEA [None]
  - GASTROOESOPHAGEAL REFLUX DISEASE [None]
  - HEART RATE INCREASED [None]
  - HYPERTENSION [None]
  - MUSCULOSKELETAL PAIN [None]
